FAERS Safety Report 13655588 (Version 1)
Quarter: 2017Q2

REPORT INFORMATION
  Report Type: Spontaneous
  Country: US (occurrence: US)
  Receive Date: 20170614
  Receipt Date: 20170614
  Transmission Date: 20170830
  Serious: Yes (Disabling, Other)
  Sender: FDA-Public Use
  Company Number: None

PATIENT
  Age: 40 Year
  Sex: Male
  Weight: 150.7 kg

DRUGS (2)
  1. PROPRANOLOL HCL ER 24HR 120MG [Suspect]
     Active Substance: PROPRANOLOL HYDROCHLORIDE
     Indication: PRODUCT USED FOR UNKNOWN INDICATION
     Dosage: ?          QUANTITY:1 CAPSULE(S);?
     Route: 048
     Dates: start: 20170606, end: 20170614
  2. PROPRANOLOL HCL ER 24HR 120MG [Suspect]
     Active Substance: PROPRANOLOL HYDROCHLORIDE
     Indication: BLOOD PRESSURE MEASUREMENT
     Dosage: ?          QUANTITY:1 CAPSULE(S);?
     Route: 048
     Dates: start: 20170606, end: 20170614

REACTIONS (5)
  - Hypertension [None]
  - Drug ineffective [None]
  - Product tampering [None]
  - Psychotic disorder [None]
  - Product substitution issue [None]

NARRATIVE: CASE EVENT DATE: 20170606
